FAERS Safety Report 8095824-6 (Version None)
Quarter: 2012Q1

REPORT INFORMATION
  Report Type: 
  Country: None (occurrence: None)
  Receive Date: 20120126
  Receipt Date: 20120114
  Transmission Date: 20120608
  Serious: Yes (Hospitalization)
  Sender: FDA-Public Use
  Company Number: 2012AP000115

PATIENT
  Age: 83 Year
  Sex: Male

DRUGS (9)
  1. CLARITHROMYCIN [Suspect]
     Indication: PNEUMONIA
     Dosage: 500 MG;BID
     Route: 048
  2. ISOSORBIDE MONONITRATE [Concomitant]
  3. CAPTOPRIL [Concomitant]
  4. DIGOXIN [Suspect]
     Indication: CARDIAC DISORDER
     Dosage: 0.125 MG;QD
     Route: 048
  5. BISOPROLOL FUMARATE [Concomitant]
  6. FUROSEMIDE [Concomitant]
  7. POTASSIUM CHLORIDE [Concomitant]
  8. PRAVASTATIN [Concomitant]
  9. SPIRONOLACTONE [Concomitant]

REACTIONS (12)
  - DYSPNOEA EXERTIONAL [None]
  - CARDIOACTIVE DRUG LEVEL ABOVE THERAPEUTIC [None]
  - VENTRICULAR EXTRASYSTOLES [None]
  - NAUSEA [None]
  - DECREASED APPETITE [None]
  - DRUG INTERACTION [None]
  - MALAISE [None]
  - RENAL IMPAIRMENT [None]
  - TOXICITY TO VARIOUS AGENTS [None]
  - DIZZINESS [None]
  - COUGH [None]
  - FATIGUE [None]
